FAERS Safety Report 8620438-6 (Version None)
Quarter: 2012Q3

REPORT INFORMATION
  Report Type: 
  Country: None (occurrence: None)
  Receive Date: 20120824
  Receipt Date: 20120820
  Transmission Date: 20120928
  Serious: Yes (Hospitalization)
  Sender: FDA-Public Use
  Company Number: US-GILEAD-2012-0058964

PATIENT
  Sex: Female

DRUGS (1)
  1. LETAIRIS [Suspect]
     Indication: PRODUCT USED FOR UNKNOWN INDICATION
     Dosage: 5 MG, UNK
     Route: 048
     Dates: start: 20120411

REACTIONS (9)
  - HAEMATEMESIS [None]
  - BREATH SOUNDS ABNORMAL [None]
  - COUGH [None]
  - EPISTAXIS [None]
  - HAEMATOCRIT DECREASED [None]
  - SPUTUM DISCOLOURED [None]
  - OXYGEN SATURATION DECREASED [None]
  - HAEMOPTYSIS [None]
  - TOOTH DISORDER [None]
